FAERS Safety Report 18999261 (Version 1)
Quarter: 2021Q1

REPORT INFORMATION
  Report Type: Spontaneous
  Country: CN (occurrence: CN)
  Receive Date: 20210311
  Receipt Date: 20210311
  Transmission Date: 20210420
  Serious: Yes (Hospitalization, Other)
  Sender: FDA-Public Use
  Company Number: CN-SA-2021SA072758

PATIENT
  Age: 62 Year
  Sex: Female
  Weight: 50 kg

DRUGS (2)
  1. ELOXATIN [Suspect]
     Active Substance: OXALIPLATIN
     Indication: COLON CANCER
     Dosage: 120 MG, QD
     Route: 041
     Dates: start: 20210224, end: 20210224
  2. GLUCOSE [Concomitant]
     Active Substance: DEXTROSE
     Indication: MEDICATION DILUTION
     Dosage: 500 ML, QD
     Route: 041
     Dates: start: 20210224, end: 20210224

REACTIONS (3)
  - Cough [Recovered/Resolved]
  - Larynx irritation [Recovered/Resolved]
  - Anaphylactic shock [Recovered/Resolved]

NARRATIVE: CASE EVENT DATE: 20210224
